FAERS Safety Report 11226556 (Version 2)
Quarter: 2015Q4

REPORT INFORMATION
  Report Type: Report from Study
  Country: US (occurrence: US)
  Receive Date: 20150630
  Receipt Date: 20151002
  Transmission Date: 20160304
  Serious: Yes (Hospitalization, Other)
  Sender: FDA-Public Use
  Company Number: US-AMGEN-USASP2015062059

PATIENT
  Age: 38 Year
  Sex: Female

DRUGS (2)
  1. ENBREL [Suspect]
     Active Substance: ETANERCEPT
     Dosage: UNK UNK, UNK
     Route: 065
  2. ENBREL [Suspect]
     Active Substance: ETANERCEPT
     Indication: PSORIATIC ARTHROPATHY
     Dosage: 50 MG, QWK
     Route: 065
     Dates: start: 2012

REACTIONS (13)
  - Kidney infection [Unknown]
  - Malaise [Recovered/Resolved]
  - Scarlet fever [Recovered/Resolved]
  - Urinary tract infection [Unknown]
  - Arthropathy [Not Recovered/Not Resolved]
  - Exostosis [Recovered/Resolved]
  - Scoliosis [Not Recovered/Not Resolved]
  - Intervertebral disc disorder [Recovered/Resolved]
  - Pharyngitis streptococcal [Recovered/Resolved]
  - Back pain [Not Recovered/Not Resolved]
  - Intervertebral disc protrusion [Not Recovered/Not Resolved]
  - Arthralgia [Not Recovered/Not Resolved]
  - Impaired work ability [Not Recovered/Not Resolved]

NARRATIVE: CASE EVENT DATE: 2012
